FAERS Safety Report 5079502-3 (Version None)
Quarter: 2006Q3

REPORT INFORMATION
  Report Type: 
  Country: None (occurrence: None)
  Receive Date: 20060814
  Receipt Date: 20050912
  Transmission Date: 20061208
  Serious: No
  Sender: FDA-Public Use
  Company Number: US-BRISTOL-MYERS SQUIBB COMPANY-13108386

PATIENT
  Age: 64 Year
  Sex: Female
  Weight: 58 kg

DRUGS (3)
  1. GLUCOVANCE [Suspect]
     Dosage: 1 DOSAGE FORM = 5MG/500MG
  2. LIPITOR [Concomitant]
  3. TENEX [Concomitant]
     Dosage: 2 MG TABLET, TAKES 1/2 TAB/DAY

REACTIONS (1)
  - BLOOD GLUCOSE INCREASED [None]
